FAERS Safety Report 7433517-6 (Version None)
Quarter: 2011Q2

REPORT INFORMATION
  Report Type: 
  Country: None (occurrence: None)
  Receive Date: 20110422
  Receipt Date: 20110112
  Transmission Date: 20111010
  Serious: No
  Sender: FDA-Public Use
  Company Number: US-MUTUAL PHARMACEUTICAL COMPANY, INC.-CLHC20110006

PATIENT
  Sex: Male
  Weight: 86.26 kg

DRUGS (5)
  1. ALLOPURINOL [Concomitant]
     Indication: GOUT
     Route: 065
  2. OMEPRAZOLE [Concomitant]
     Indication: GASTROOESOPHAGEAL REFLUX DISEASE
     Route: 065
  3. SIMVASTATIN [Concomitant]
     Indication: BLOOD CHOLESTEROL INCREASED
     Route: 065
  4. COLCHICINE [Suspect]
     Indication: GOUT
     Route: 048
  5. ATENOLOL [Concomitant]
     Indication: HYPERTENSION
     Route: 065

REACTIONS (1)
  - PARAESTHESIA [None]
